FAERS Safety Report 18180721 (Version 1)
Quarter: 2020Q3

REPORT INFORMATION
  Report Type: Spontaneous
  Country: US (occurrence: US)
  Receive Date: 20200820
  Receipt Date: 20200820
  Transmission Date: 20201103
  Serious: No
  Sender: FDA-Public Use
  Company Number: None

PATIENT
  Age: 77 Year
  Sex: Female
  Weight: 108.41 kg

DRUGS (3)
  1. ORENCIA [Suspect]
     Active Substance: ABATACEPT
     Indication: SENILE OSTEOPOROSIS
  2. ORENCIA [Suspect]
     Active Substance: ABATACEPT
     Indication: SENILE OSTEOPOROSIS
  3. ORENCIA [Suspect]
     Active Substance: ABATACEPT
     Indication: RHEUMATOID ARTHRITIS
     Route: 058
     Dates: start: 201806

REACTIONS (2)
  - Pneumonia [None]
  - Therapy interrupted [None]
